FAERS Safety Report 26147521 (Version 1)
Quarter: 2025Q4

REPORT INFORMATION
  Report Type: Report from Study
  Country: EU (occurrence: EU)
  Receive Date: 20251211
  Receipt Date: 20251211
  Transmission Date: 20260117
  Serious: Yes (Death)
  Sender: ABBVIE
  Company Number: EU-ABBVIE-6582100

PATIENT
  Age: 66 Year
  Sex: Female

DRUGS (2)
  1. FOSCARBIDOPA\FOSLEVODOPA [Suspect]
     Active Substance: FOSCARBIDOPA\FOSLEVODOPA
     Indication: Parkinson^s disease
     Dosage: 240MG/ML FOSLEVODOPA + 12MG/ML FOSCARBIDOPA, SOLUTION FOR SUBCUTANEOUS?INFUSION. INITIAL DOSES: L...
     Route: 058
     Dates: end: 20250612
  2. FOSCARBIDOPA\FOSLEVODOPA [Suspect]
     Active Substance: FOSCARBIDOPA\FOSLEVODOPA
     Dosage: 240MG/ML FOSLEVODOPA + 12MG/ML FOSCARBIDOPA, SOLUTION FOR SUBCUTANEOUS INFUSION ?INITIAL DOSES: B...
     Route: 058
     Dates: start: 20240722, end: 20250612

REACTIONS (3)
  - Cardio-respiratory arrest [Fatal]
  - Cerebrovascular accident [Fatal]
  - Therapy cessation [Unknown]

NARRATIVE: CASE EVENT DATE: 20251001
